FAERS Safety Report 8820605 (Version 1)
Quarter: 2012Q4

REPORT INFORMATION
  Report Type: 
  Country: US (occurrence: US)
  Receive Date: 20121002
  Receipt Date: 20121002
  Transmission Date: 20130627
  Serious: No
  Sender: FDA-Public Use
  Company Number: US-B.I. PHARMACEUTICALS,INC./RIDGEFIELD-2012-BP-23640BP

PATIENT
  Age: 80 Year
  Sex: Female
  Weight: 54 kg

DRUGS (8)
  1. PRADAXA [Suspect]
     Indication: HEART RATE IRREGULAR
     Dosage: 150 mg
     Route: 048
     Dates: start: 20120405
  2. NORVASC [Concomitant]
     Indication: HYPERTENSION
     Dosage: 10 mg
     Route: 048
     Dates: start: 20120405
  3. SYNTHROID [Concomitant]
     Indication: HYPOTHYROIDISM
     Dosage: 88 mg
     Route: 048
     Dates: start: 2006
  4. PRILOSEC [Concomitant]
     Indication: ABDOMINAL DISCOMFORT
     Dosage: 20 mg
     Route: 048
     Dates: start: 201206
  5. METOPROLOL [Concomitant]
     Indication: CARDIAC DISORDER
     Dosage: 25 mg
     Route: 048
     Dates: start: 20120405
  6. IRON TABLET [Concomitant]
     Indication: ANAEMIA
     Dosage: 65 mg
     Route: 048
     Dates: start: 2010
  7. B 12 [Concomitant]
     Indication: VITAMIN SUPPLEMENTATION
     Dosage: 1000 mg
     Route: 048
     Dates: start: 201205
  8. CALTRATE WITH VITAMIN D [Concomitant]
     Indication: BONE DISORDER
     Dosage: 1200 mg
     Route: 048
     Dates: start: 2007

REACTIONS (3)
  - Parosmia [Not Recovered/Not Resolved]
  - Arthralgia [Not Recovered/Not Resolved]
  - Dysgeusia [Not Recovered/Not Resolved]
